FAERS Safety Report 14735298 (Version 1)
Quarter: 2018Q2

REPORT INFORMATION
  Report Type: Spontaneous
  Country: AU (occurrence: AU)
  Receive Date: 20180409
  Receipt Date: 20180409
  Transmission Date: 20180711
  Serious: Yes (Other)
  Sender: FDA-Public Use
  Company Number: AU-MYLANLABS-2018M1022242

PATIENT
  Age: 5 Decade
  Sex: Male
  Weight: 72.8 kg

DRUGS (1)
  1. MIRTAZAPINE. [Suspect]
     Active Substance: MIRTAZAPINE
     Indication: DEPRESSION
     Route: 065

REACTIONS (6)
  - Non-alcoholic steatohepatitis [Unknown]
  - Hypertriglyceridaemia [Recovering/Resolving]
  - Increased appetite [Unknown]
  - Weight increased [Unknown]
  - Binge eating [Unknown]
  - Diabetes mellitus [Unknown]
